FAERS Safety Report 5470550-8 (Version None)
Quarter: 2007Q3

REPORT INFORMATION
  Report Type: 
  Country: None (occurrence: None)
  Receive Date: 20070928
  Receipt Date: 20070920
  Transmission Date: 20080115
  Serious: Yes (Other)
  Sender: FDA-Public Use
  Company Number: PHBS2007BR15124

PATIENT
  Age: 76 Year
  Sex: Female
  Weight: 62 kg

DRUGS (2)
  1. FORASEQ [Suspect]
     Indication: BRONCHITIS
  2. NEOSALDINA [Concomitant]
     Indication: HEADACHE
     Route: 048

REACTIONS (4)
  - ABDOMINAL PAIN UPPER [None]
  - BLADDER CALCULUS REMOVAL [None]
  - DYSPNOEA [None]
  - SURGERY [None]
